FAERS Safety Report 10050316 (Version 2)
Quarter: 2014Q2

REPORT INFORMATION
  Report Type: Spontaneous
  Country: FR (occurrence: FR)
  Receive Date: 20140401
  Receipt Date: 20140408
  Transmission Date: 20141212
  Serious: Yes (Life-Threatening)
  Sender: FDA-Public Use
  Company Number: PHHY2014FR035593

PATIENT
  Age: 89 Year
  Sex: Male

DRUGS (1)
  1. AMOXICILLIN CLAVULANIC ACID SANDOZ [Suspect]
     Dosage: 1 G, TID
     Route: 042
     Dates: start: 20140307, end: 20140307

REACTIONS (2)
  - Anaphylactic shock [Recovered/Resolved]
  - Drug prescribing error [Recovered/Resolved]
